FAERS Safety Report 9113146 (Version 1)
Quarter: 2013Q1

REPORT INFORMATION
  Report Type: Spontaneous
  Country: US (occurrence: US)
  Receive Date: 20130211
  Receipt Date: 20130211
  Transmission Date: 20140127
  Serious: No
  Sender: FDA-Public Use
  Company Number: US-ASTRAZENECA-2013SE07032

PATIENT
  Age: 55 Year
  Sex: Male
  Weight: 99.8 kg

DRUGS (8)
  1. NEXIUM [Suspect]
     Indication: DYSPEPSIA
     Route: 048
     Dates: start: 2005, end: 2008
  2. METOPROLOL [Suspect]
     Route: 065
  3. HYDROCODONE [Concomitant]
     Indication: BACK PAIN
  4. SIMVASTATIN [Concomitant]
  5. SERTRALINE HCL [Concomitant]
  6. CLONIDINE [Concomitant]
  7. HUMALOG INSULIN 75/25 [Concomitant]
  8. VITAMIN B [Concomitant]

REACTIONS (5)
  - Activities of daily living impaired [Not Recovered/Not Resolved]
  - Back disorder [Not Recovered/Not Resolved]
  - Blood glucose decreased [Not Recovered/Not Resolved]
  - Gait disturbance [Not Recovered/Not Resolved]
  - Spinal column stenosis [Not Recovered/Not Resolved]
